FAERS Safety Report 15371291 (Version 3)
Quarter: 2018Q3

REPORT INFORMATION
  Report Type: Spontaneous
  Country: BR (occurrence: BR)
  Receive Date: 20180911
  Receipt Date: 20180928
  Transmission Date: 20181010
  Serious: Yes (Other)
  Sender: FDA-Public Use
  Company Number: BR-SA-2018SA246380

PATIENT
  Age: 53 Year
  Sex: Female
  Weight: 66 kg

DRUGS (13)
  1. SYNTHROID [Concomitant]
     Active Substance: LEVOTHYROXINE SODIUM
     Dosage: UNK UNK, QD
     Route: 048
  2. NOVALGINA [Concomitant]
     Active Substance: METAMIZOLE SODIUM
     Dosage: UNK
     Route: 042
  3. CLEXANE [Suspect]
     Active Substance: ENOXAPARIN SODIUM
     Dosage: 40 MG, QD
     Route: 058
     Dates: start: 20180413
  4. ONDANSETRON [Concomitant]
     Active Substance: ONDANSETRON
     Dosage: UNK
     Route: 042
  5. DRAMIN B6 [Concomitant]
     Dosage: UNK UNK, QD
     Route: 042
  6. LEXOTAN [Concomitant]
     Active Substance: BROMAZEPAM
     Dosage: UNK UNK, QD
     Route: 048
  7. LUFTAL [SIMETICONE] [Concomitant]
     Dosage: 30 GTT DROPS, PRN
     Route: 065
  8. SELOZOK [Concomitant]
     Active Substance: METOPROLOL SUCCINATE
     Dosage: UNK UNK, QD
     Route: 048
  9. MESACOL [MESALAZINE] [Concomitant]
     Dosage: UNK UNK, QD
     Route: 054
  10. PANTOPRAZOLE [Concomitant]
     Active Substance: PANTOPRAZOLE
     Dosage: UNK UNK, QD
     Route: 042
  11. SANDOSTATIN LAR DEPOT [Concomitant]
     Active Substance: OCTREOTIDE ACETATE
     Dosage: UNK UNK, QD
     Route: 050
  12. ELEMENTAL F [Concomitant]
     Dosage: UNK UNK, QD
     Route: 042
  13. CERNE 12 [Concomitant]
     Active Substance: VITAMINS
     Dosage: UNK UNK, QD
     Route: 042

REACTIONS (2)
  - Haemorrhage [Recovered/Resolved]
  - Enterocutaneous fistula [Recovered/Resolved]

NARRATIVE: CASE EVENT DATE: 20180630
